FAERS Safety Report 6844028-0 (Version None)
Quarter: 2010Q3

REPORT INFORMATION
  Report Type: 
  Country: None (occurrence: None)
  Receive Date: 20100715
  Receipt Date: 20100702
  Transmission Date: 20110219
  Serious: Yes (Hospitalization)
  Sender: FDA-Public Use
  Company Number: US-ELI_LILLY_AND_COMPANY-US201007000564

PATIENT
  Sex: Female

DRUGS (11)
  1. GEMCITABINE HYDROCHLORIDE [Suspect]
     Indication: ADENOCARCINOMA PANCREAS
     Dosage: 1730 MG, UNKNOWN
     Route: 065
     Dates: start: 20100106
  2. RITALIN [Concomitant]
     Indication: FATIGUE
     Route: 048
     Dates: start: 20100407
  3. MAXZIDE [Concomitant]
     Indication: HYPERTENSION
     Route: 048
     Dates: start: 20030101
  4. ATENOLOL [Concomitant]
     Indication: ARRHYTHMIA
     Route: 048
     Dates: start: 20020101
  5. OMEPRAZOLE [Concomitant]
     Indication: GASTROOESOPHAGEAL REFLUX DISEASE
     Route: 048
     Dates: start: 20020101
  6. FISH OIL [Concomitant]
     Indication: SUPPLEMENTATION THERAPY
     Route: 048
     Dates: start: 20091109
  7. ZOLPIDEM [Concomitant]
     Indication: INSOMNIA
     Route: 048
     Dates: start: 20091228
  8. DOLASETRON [Concomitant]
     Indication: PROPHYLAXIS
     Route: 042
     Dates: start: 20100106
  9. DEXAMETHASONE ACETATE [Concomitant]
     Indication: PROPHYLAXIS
     Route: 042
     Dates: start: 20100106
  10. MILK OF MAGNESIA TAB [Concomitant]
     Indication: CONSTIPATION
     Route: 048
     Dates: start: 20100113
  11. HEPARIN [Concomitant]
     Indication: PROPHYLAXIS
     Route: 042
     Dates: start: 20091221

REACTIONS (1)
  - GENERAL PHYSICAL HEALTH DETERIORATION [None]
